FAERS Safety Report 11327928 (Version 2)
Quarter: 2015Q3

REPORT INFORMATION
  Report Type: Spontaneous
  Country: NL (occurrence: NL)
  Receive Date: 20150731
  Receipt Date: 20150813
  Transmission Date: 20151125
  Serious: Yes (Death, Other)
  Sender: FDA-Public Use
  Company Number: NL-BAYER-2015-386879

PATIENT
  Age: 68 Year
  Sex: Male

DRUGS (2)
  1. XOFIGO [Suspect]
     Active Substance: RADIUM RA-223 DICHLORIDE
     Indication: PROSTATE CANCER STAGE IV
     Dates: start: 20150707
  2. XOFIGO [Suspect]
     Active Substance: RADIUM RA-223 DICHLORIDE
     Indication: PROSTATE CANCER STAGE IV
     Dosage: UNK
     Dates: start: 201506

REACTIONS (3)
  - Hepatic failure [Fatal]
  - Prostate cancer [Recovered/Resolved]
  - Biliary tract disorder [Fatal]

NARRATIVE: CASE EVENT DATE: 20150611
